FAERS Safety Report 8574457-9 (Version None)
Quarter: 2012Q3

REPORT INFORMATION
  Report Type: 
  Country: None (occurrence: None)
  Receive Date: 20120806
  Receipt Date: 20120530
  Transmission Date: 20120928
  Serious: No
  Sender: FDA-Public Use
  Company Number: US-ABBOTT-12P-163-0941287-00

PATIENT
  Sex: Female
  Weight: 88.53 kg

DRUGS (5)
  1. DEPAKOTE ER [Suspect]
     Indication: EPILEPSY
     Dates: start: 20120507, end: 20120522
  2. ATENOLOL [Concomitant]
     Indication: HYPERTENSION
  3. TEGRETOL [Concomitant]
     Indication: EPILEPSY
  4. DEPAKOTE ER [Suspect]
     Dates: start: 20120501, end: 20120506
  5. FLUOXETINE HCL [Concomitant]
     Indication: DEPRESSION

REACTIONS (4)
  - URINE ODOUR ABNORMAL [None]
  - ABDOMINAL PAIN UPPER [None]
  - VOMITING [None]
  - CHROMATURIA [None]
